FAERS Safety Report 8257771-6 (Version None)
Quarter: 2012Q2

REPORT INFORMATION
  Report Type: 
  Country: None (occurrence: None)
  Receive Date: 20120404
  Receipt Date: 20120326
  Transmission Date: 20120825
  Serious: Yes (Hospitalization)
  Sender: FDA-Public Use
  Company Number: 2005BI021774

PATIENT
  Age: 32 Year
  Sex: Female

DRUGS (5)
  1. AVONEX [Suspect]
     Route: 030
     Dates: start: 20051223, end: 20080201
  2. AVONEX [Suspect]
     Route: 030
     Dates: start: 20080514, end: 20110101
  3. AVONEX [Suspect]
     Route: 030
     Dates: start: 20120210
  4. AVONEX [Suspect]
     Indication: MULTIPLE SCLEROSIS
     Route: 030
     Dates: start: 20040119, end: 20041013
  5. AVONEX [Suspect]
     Route: 030
     Dates: start: 20041223

REACTIONS (7)
  - CEREBROVASCULAR ACCIDENT [None]
  - PULMONARY OEDEMA [None]
  - BRAIN OEDEMA [None]
  - FATIGUE [None]
  - DEEP VEIN THROMBOSIS [None]
  - WEIGHT INCREASED [None]
  - RUPTURED CEREBRAL ANEURYSM [None]
